FAERS Safety Report 6875729-6 (Version None)
Quarter: 2010Q3

REPORT INFORMATION
  Report Type: 
  Country: None (occurrence: None)
  Receive Date: 20100727
  Receipt Date: 20070730
  Transmission Date: 20110219
  Serious: Yes (Hospitalization, Disabling, Other)
  Sender: FDA-Public Use
  Company Number: US-PFIZER INC-2006105635

PATIENT
  Sex: Male
  Weight: 108.9 kg

DRUGS (13)
  1. CELEBREX [Suspect]
     Indication: ROTATOR CUFF SYNDROME
     Dates: start: 20010420
  2. BEXTRA [Suspect]
     Indication: ARTHRALGIA
     Dates: start: 20030428
  3. VIOXX [Suspect]
     Indication: ROTATOR CUFF SYNDROME
     Dosage: 1-2 TIMES DAILY
     Route: 048
     Dates: start: 19990709
  4. ACETYLSALICYLIC ACID SRT [Concomitant]
     Indication: PROPHYLAXIS
     Dates: start: 20010301
  5. HYDROCODONE BITARTRATE [Concomitant]
     Indication: PAIN
     Dates: start: 19990709, end: 20060713
  6. MOTRIN [Concomitant]
     Indication: PAIN
     Dates: start: 20010101
  7. OXYCODONE [Concomitant]
     Indication: PAIN
     Dates: start: 20000821, end: 20040112
  8. ACETAMINOPHEN [Concomitant]
     Dates: start: 20010101
  9. VICODIN [Concomitant]
     Indication: PAIN
     Dates: start: 20010328, end: 20021028
  10. ALTACE [Concomitant]
     Indication: HYPERTENSION
     Dates: start: 20030906, end: 20040126
  11. ZIAC [Concomitant]
     Indication: HYPERTENSION
     Dates: start: 19990708, end: 20040126
  12. BISOPROLOL [Concomitant]
     Indication: HYPERTENSION
     Dates: start: 20001029, end: 20030823
  13. NITROTAB [Concomitant]
     Dates: start: 20010402, end: 20040219

REACTIONS (1)
  - MYOCARDIAL INFARCTION [None]
